FAERS Safety Report 19121637 (Version 1)
Quarter: 2021Q2

REPORT INFORMATION
  Report Type: Spontaneous
  Country: US (occurrence: US)
  Receive Date: 20210412
  Receipt Date: 20210412
  Transmission Date: 20210717
  Serious: Yes (Other)
  Sender: FDA-Public Use
  Company Number: US-GLAXOSMITHKLINE-US2021GSK079449

PATIENT
  Sex: Female

DRUGS (4)
  1. ZANTAC [Suspect]
     Active Substance: RANITIDINE HYDROCHLORIDE
     Indication: HEADACHE
     Dosage: 50 MG, QD
     Route: 065
     Dates: start: 199901, end: 200501
  2. RANITIDINE. [Suspect]
     Active Substance: RANITIDINE
     Indication: HEADACHE
     Dosage: 50 MG, QD
     Route: 065
     Dates: start: 199901, end: 200501
  3. RANITIDINE. [Suspect]
     Active Substance: RANITIDINE
     Indication: HEADACHE
     Dosage: 50 MG, QD
     Route: 065
     Dates: start: 199901, end: 200501
  4. ZANTAC [Suspect]
     Active Substance: RANITIDINE HYDROCHLORIDE
     Indication: HEADACHE
     Dosage: 50 MG, QD
     Route: 065
     Dates: start: 199901, end: 200501

REACTIONS (1)
  - Renal cancer [Unknown]
